FAERS Safety Report 18061213 (Version 2)
Quarter: 2020Q3

REPORT INFORMATION
  Report Type: Report from Study
  Country: IN (occurrence: IN)
  Receive Date: 20200723
  Receipt Date: 20200918
  Transmission Date: 20201103
  Serious: Yes (Death, Hospitalization)
  Sender: FDA-Public Use
  Company Number: NVSC2020IN207045

PATIENT
  Age: 40 Year
  Sex: Female
  Weight: 55 kg

DRUGS (1)
  1. SPEXIB [Suspect]
     Active Substance: CERITINIB
     Indication: NON-SMALL CELL LUNG CANCER
     Dosage: 450 MG, QD
     Route: 048
     Dates: start: 20181124, end: 20200612

REACTIONS (2)
  - Malignant neoplasm progression [Fatal]
  - Non-small cell lung cancer [Fatal]

NARRATIVE: CASE EVENT DATE: 20200612
